FAERS Safety Report 8472029-8 (Version None)
Quarter: 2012Q2

REPORT INFORMATION
  Report Type: 
  Country: None (occurrence: None)
  Receive Date: 20120627
  Receipt Date: 20120620
  Transmission Date: 20120825
  Serious: Yes (Hospitalization)
  Sender: FDA-Public Use
  Company Number: JP-JNJFOC-20120611606

PATIENT
  Sex: Female
  Weight: 42 kg

DRUGS (21)
  1. SIMPONI [Suspect]
     Route: 058
     Dates: start: 20120412
  2. METHOTREXATE [Suspect]
     Route: 065
     Dates: start: 20111006, end: 20120118
  3. PREDNISOLONE [Suspect]
     Indication: RHEUMATOID ARTHRITIS
     Route: 048
     Dates: end: 20120314
  4. SIMPONI [Suspect]
     Route: 058
     Dates: start: 20120119
  5. SIMPONI [Suspect]
     Route: 058
     Dates: start: 20120315
  6. KETOPROFEN [Concomitant]
     Indication: RHEUMATOID ARTHRITIS
     Route: 062
     Dates: end: 20120510
  7. PIPERACILLIN SODIUM [Concomitant]
     Indication: PYELONEPHRITIS ACUTE
     Route: 042
  8. PIPERACILLIN SODIUM [Concomitant]
     Route: 042
  9. CEFAZOLIN SODIUM [Concomitant]
     Indication: PROPHYLAXIS
     Route: 048
  10. CLINORIL [Concomitant]
     Indication: RHEUMATOID ARTHRITIS
     Route: 048
  11. SIMPONI [Suspect]
     Route: 058
     Dates: start: 20120216
  12. PREDNISOLONE [Suspect]
     Route: 048
     Dates: start: 20120315
  13. DEPAS [Concomitant]
     Indication: PROPHYLAXIS
     Route: 048
  14. SIMPONI [Suspect]
     Indication: RHEUMATOID ARTHRITIS
     Route: 058
     Dates: start: 20111222
  15. METHOTREXATE [Suspect]
     Route: 065
     Dates: start: 20120412, end: 20120510
  16. FAMOTIDINE [Concomitant]
     Indication: PROPHYLAXIS
     Route: 048
  17. FOLIAMIN [Concomitant]
     Indication: PROPHYLAXIS
     Route: 048
  18. ZOSYN [Concomitant]
     Indication: PYELONEPHRITIS ACUTE
     Route: 042
  19. CRAVIT [Concomitant]
     Indication: PYELONEPHRITIS ACUTE
     Route: 048
  20. METHOTREXATE [Suspect]
     Indication: RHEUMATOID ARTHRITIS
     Route: 065
     Dates: start: 20120119, end: 20120411
  21. ISONIAZID [Concomitant]
     Indication: PROPHYLAXIS
     Route: 048

REACTIONS (1)
  - PYELONEPHRITIS ACUTE [None]
